FAERS Safety Report 5280951-9 (Version None)
Quarter: 2007Q1

REPORT INFORMATION
  Report Type: 
  Country: None (occurrence: None)
  Receive Date: 20070329
  Receipt Date: 20070320
  Transmission Date: 20070707
  Serious: Yes (Disabling, Other)
  Sender: FDA-Public Use
  Company Number: CA-SHR-CA-2007-009853

PATIENT
  Age: 60 Year
  Sex: Male

DRUGS (2)
  1. MAGNEVIST [Suspect]
     Dosage: 15 ML, 1 DOSE
     Route: 042
     Dates: start: 20060101, end: 20060101
  2. CONTRAST MEDIA [Suspect]
     Dosage: UNK, 1 DOSE

REACTIONS (1)
  - NEPHROGENIC FIBROSING DERMOPATHY [None]
